FAERS Safety Report 5230527-4 (Version None)
Quarter: 2007Q1

REPORT INFORMATION
  Report Type: 
  Country: None (occurrence: None)
  Receive Date: 20070206
  Receipt Date: 20070202
  Transmission Date: 20070707
  Serious: Yes (Life-Threatening, Other)
  Sender: FDA-Public Use
  Company Number: US-GLAXOSMITHKLINE-A0627016A

PATIENT
  Age: 76 Year
  Sex: Male

DRUGS (2)
  1. REQUIP [Suspect]
     Indication: PARKINSON'S DISEASE
     Dosage: .5MG PER DAY
     Route: 048
     Dates: start: 20060101, end: 20061101
  2. SYNTHROID [Concomitant]

REACTIONS (11)
  - AMMONIA INCREASED [None]
  - ASCITES [None]
  - FIBRIN D DIMER INCREASED [None]
  - GAMMA-GLUTAMYLTRANSFERASE INCREASED [None]
  - HEPATIC FAILURE [None]
  - HYPOALBUMINAEMIA [None]
  - HYPOKALAEMIA [None]
  - LEUKOPENIA [None]
  - NAUSEA [None]
  - PLEURAL EFFUSION [None]
  - THROMBOCYTOPENIA [None]
